FAERS Safety Report 6555211-6 (Version None)
Quarter: 2010Q1

REPORT INFORMATION
  Report Type: 
  Country: None (occurrence: None)
  Receive Date: 20100128
  Receipt Date: 20100113
  Transmission Date: 20100710
  Serious: No
  Sender: FDA-Public Use
  Company Number: US-BAYER-200943688NA

PATIENT
  Age: 61 Year
  Sex: Male

DRUGS (4)
  1. LEVITRA [Suspect]
     Indication: ERECTILE DYSFUNCTION
     Dosage: UNIT DOSE: 10 MG
     Route: 048
     Dates: start: 20091224
  2. HYDROCHLOROTHIAZIDE [Concomitant]
  3. LOSARTAN POTASSIUM [Concomitant]
  4. METFORMIN HCL [Concomitant]

REACTIONS (2)
  - ERECTILE DYSFUNCTION [None]
  - HEART RATE INCREASED [None]
